FAERS Safety Report 8397708-2 (Version None)
Quarter: 2012Q2

REPORT INFORMATION
  Report Type: 
  Country: None (occurrence: None)
  Receive Date: 20120531
  Receipt Date: 20120522
  Transmission Date: 20120825
  Serious: Yes (Hospitalization, Other)
  Sender: FDA-Public Use
  Company Number: US-BAYER-2012-024484

PATIENT
  Age: 47 Year
  Sex: Female
  Weight: 74.83 kg

DRUGS (12)
  1. YASMIN [Suspect]
     Indication: PREMENSTRUAL SYNDROME
  2. BETA CAROTENE [Concomitant]
     Indication: SUPPLEMENTATION THERAPY
     Dosage: 2 PER DAY, UNK
  3. VOLTAREN [Concomitant]
     Dosage: 50 MG, BID
  4. IBUPROFEN [Concomitant]
     Indication: PAIN
     Dosage: 2 [TIMES] DAILY, UNK
  5. IBUPROFEN (ADVIL) [Concomitant]
     Indication: MUSCULOSKELETAL PAIN
     Dosage: UNK UNK, BID
  6. RHINOCORT [Concomitant]
     Indication: SINUS CONGESTION
     Dosage: UNK
     Dates: start: 19900101, end: 20060101
  7. VITAMIN C [Concomitant]
     Dosage: UNK
     Dates: start: 20000101, end: 20070101
  8. WOMEN+#8217;S MULTIVITAMIN [Concomitant]
     Indication: SUPPLEMENTATION THERAPY
     Dosage: 2 PER DAY, UNK
  9. NATURAL VITAMIN E [Concomitant]
     Indication: SUPPLEMENTATION THERAPY
     Dosage: 1 PER DAY, UNK
  10. YASMIN [Suspect]
     Indication: MENSTRUAL DISORDER
     Dosage: UNK
     Route: 048
     Dates: start: 20020827, end: 20021021
  11. IBUPROFEN (ADVIL) [Concomitant]
     Indication: PAIN IN EXTREMITY
  12. PROTONIX [Concomitant]
     Indication: GASTROOESOPHAGEAL REFLUX DISEASE

REACTIONS (21)
  - MOOD SWINGS [None]
  - PULMONARY EMBOLISM [None]
  - ARTHRALGIA [None]
  - WEIGHT INCREASED [None]
  - DEEP VEIN THROMBOSIS [None]
  - PNEUMONIA [None]
  - SUPERFICIAL VEIN PROMINENCE [None]
  - OEDEMA PERIPHERAL [None]
  - FRUSTRATION [None]
  - INJURY [None]
  - GENERAL PHYSICAL HEALTH DETERIORATION [None]
  - ANXIETY [None]
  - HYPOAESTHESIA [None]
  - EMOTIONAL DISTRESS [None]
  - VEIN DISORDER [None]
  - JOINT SWELLING [None]
  - PAIN IN EXTREMITY [None]
  - PARAESTHESIA [None]
  - PSORIATIC ARTHROPATHY [None]
  - PAIN [None]
  - FATIGUE [None]
